FAERS Safety Report 8099316-X (Version None)
Quarter: 2012Q1

REPORT INFORMATION
  Report Type: 
  Country: None (occurrence: None)
  Receive Date: 20120131
  Receipt Date: 20120123
  Transmission Date: 20120608
  Serious: Yes (Death, Hospitalization)
  Sender: FDA-Public Use
  Company Number: US-PFIZER INC-2009304566

PATIENT
  Sex: Male
  Weight: 88.9 kg

DRUGS (10)
  1. COMPAZINE [Concomitant]
     Indication: NAUSEA
     Dosage: 5 MG, AS NEEDED
     Route: 048
     Dates: end: 20091202
  2. PREDNISONE [Concomitant]
     Indication: CAREGIVER
     Dosage: 5 MG, 2X/DAY
     Route: 048
     Dates: start: 20090807
  3. PREDNISONE TAB [Suspect]
     Indication: PROSTATE CANCER
     Dosage: 5 MG, 2X/DAY
     Route: 048
     Dates: start: 20091106, end: 20091202
  4. SYNTHROID [Concomitant]
     Indication: HYPOTHYROIDISM
     Dosage: 50 MG, 1X/DAY
     Route: 048
     Dates: end: 20091202
  5. PLAVIX [Concomitant]
     Indication: CORONARY ARTERY DISEASE
     Dosage: 75 MG, 1X/DAY
     Route: 048
     Dates: end: 20091202
  6. DARVOCET-N 50 [Concomitant]
     Indication: PAIN
     Dosage: 100/650 MG; EVERY 6 HOURS
     Route: 048
     Dates: end: 20091202
  7. FUROSEMIDE [Concomitant]
     Indication: HYPERTENSION
     Dosage: 20 MG, 1X/DAY
     Route: 048
     Dates: end: 20091202
  8. SUNITINIB MALATE [Suspect]
     Indication: PROSTATE CANCER
     Dosage: 37.5 MG, 1X/DAY
     Route: 048
     Dates: start: 20091106, end: 20091120
  9. HYDROCHLOROTHIAZIDE/METOPROLOL SUCCINATE [Concomitant]
     Indication: HYPERTENSION
     Dosage: UNK
     Route: 048
     Dates: end: 20091202
  10. VYTORIN [Concomitant]
     Indication: BLOOD CHOLESTEROL INCREASED
     Dosage: 10 MG, 1X/DAY
     Route: 048
     Dates: end: 20091202

REACTIONS (3)
  - DISEASE PROGRESSION [None]
  - TRANSIENT ISCHAEMIC ATTACK [None]
  - PROSTATE CANCER [None]
